FAERS Safety Report 5384976-4 (Version None)
Quarter: 2007Q3

REPORT INFORMATION
  Report Type: 
  Country: None (occurrence: None)
  Receive Date: 20070709
  Receipt Date: 20070626
  Transmission Date: 20080115
  Serious: Yes (Other)
  Sender: FDA-Public Use
  Company Number: 200706011

PATIENT
  Age: 68 Year
  Sex: Male
  Weight: 121.564 kg

DRUGS (8)
  1. TESTIM [Suspect]
     Indication: HYPOGONADISM
     Dosage: 50 MG, DAILY, TRANSDERMAL
     Route: 062
     Dates: start: 20070518, end: 20070601
  2. LASIX [Concomitant]
  3. VIAGRA [Concomitant]
  4. CLARITIN [Concomitant]
  5. VYTORIN [Concomitant]
  6. HYZAAR [Concomitant]
  7. METOPROLOL TARTRATE [Concomitant]
  8. POTASSIUM CHLORIDE [Concomitant]

REACTIONS (1)
  - INTERSTITIAL LUNG DISEASE [None]
